FAERS Safety Report 6308611-3 (Version None)
Quarter: 2009Q3

REPORT INFORMATION
  Report Type: 
  Country: None (occurrence: None)
  Receive Date: 20090813
  Receipt Date: 20090810
  Transmission Date: 20100115
  Serious: No
  Sender: FDA-Public Use
  Company Number: US-B.I. PHARMACEUTICALS,INC./RIDGEFIELD-2009-BP-09489BP

PATIENT
  Sex: Female

DRUGS (5)
  1. SPIRIVA [Suspect]
     Indication: CHRONIC OBSTRUCTIVE PULMONARY DISEASE
     Dosage: 18 MCG
     Route: 055
     Dates: start: 20090806
  2. SPIRIVA [Suspect]
     Indication: BRONCHITIS CHRONIC
  3. PREDNISONE [Concomitant]
     Indication: CHRONIC OBSTRUCTIVE PULMONARY DISEASE
     Dates: start: 20090801
  4. ALBUTEROL/IPRATROPIUM BROMIDE [Concomitant]
     Route: 055
  5. ALBUTEROL [Concomitant]
     Route: 055

REACTIONS (1)
  - DRUG INEFFECTIVE [None]
